FAERS Safety Report 13279482 (Version 5)
Quarter: 2020Q1

REPORT INFORMATION
  Report Type: Spontaneous
  Country: JP (occurrence: JP)
  Receive Date: 20170228
  Receipt Date: 20200124
  Transmission Date: 20200409
  Serious: Yes (Other)
  Sender: FDA-Public Use
  Company Number: JP-ROCHE-1899671

PATIENT
  Age: 56 Year
  Sex: Female

DRUGS (7)
  1. THEOPHYLLINE [Concomitant]
     Active Substance: THEOPHYLLINE ANHYDROUS
     Indication: ASPIRIN-EXACERBATED RESPIRATORY DISEASE
     Dosage: UNK
     Route: 065
  2. XOLAIR [Suspect]
     Active Substance: OMALIZUMAB
     Indication: ASPIRIN-EXACERBATED RESPIRATORY DISEASE
     Dosage: 150 MG,PER ADMINISTRATION
     Route: 058
     Dates: start: 20160511, end: 201608
  3. MONTELUKAST [Concomitant]
     Active Substance: MONTELUKAST SODIUM
     Indication: ASPIRIN-EXACERBATED RESPIRATORY DISEASE
     Dosage: UNK
     Route: 065
  4. SALBUTAMOL [Concomitant]
     Active Substance: ALBUTEROL
     Indication: ASPIRIN-EXACERBATED RESPIRATORY DISEASE
     Dosage: UNK, PRN
     Route: 065
  5. ACETYLSALICYLIC ACID [Concomitant]
     Active Substance: ASPIRIN
  6. BUDESONIDE;FORMOTEROL FUMARATE [Concomitant]
     Active Substance: BUDESONIDE\FORMOTEROL FUMARATE
     Indication: ASPIRIN-EXACERBATED RESPIRATORY DISEASE
     Dosage: UNK
     Route: 065
  7. XOLAIR [Suspect]
     Active Substance: OMALIZUMAB
     Route: 058
     Dates: start: 20160706

REACTIONS (8)
  - Sarcoidosis [Recovered/Resolved]
  - Dyspnoea [Recovering/Resolving]
  - Lung opacity [Unknown]
  - Off label use [Unknown]
  - Macule [Recovering/Resolving]
  - Pulmonary mass [Unknown]
  - Product use in unapproved indication [Unknown]
  - Granuloma [Recovering/Resolving]

NARRATIVE: CASE EVENT DATE: 201607
